FAERS Safety Report 5585754-3 (Version None)
Quarter: 2007Q4

REPORT INFORMATION
  Report Type: 
  Country: None (occurrence: None)
  Receive Date: 20071204
  Receipt Date: 20070814
  Transmission Date: 20080405
  Serious: Yes (Other)
  Sender: FDA-Public Use
  Company Number: 07-076

PATIENT
  Age: 58 Year
  Sex: Female
  Weight: 61.2356 kg

DRUGS (4)
  1. IBUPROFEN TABLETS [Suspect]
     Indication: ARTHRITIS
     Dosage: 800 MG PO TID
     Route: 048
  2. ATENOLOL [Concomitant]
  3. FOSAMAX [Concomitant]
  4. CENTRUM SILVER [Concomitant]

REACTIONS (1)
  - ADVERSE EVENT [None]
